FAERS Safety Report 24065714 (Version 1)
Quarter: 2024Q3

REPORT INFORMATION
  Report Type: Spontaneous
  Country: US (occurrence: None)
  Receive Date: 20240708
  Receipt Date: 20240708
  Transmission Date: 20241016
  Serious: Yes (Hospitalization)
  Sender: Public
  Company Number: None

PATIENT
  Sex: Female

DRUGS (4)
  1. TACROLIMUS [Suspect]
     Active Substance: TACROLIMUS
     Indication: Renal transplant
     Dosage: 0.5MG TWICE A DAY ORAL
     Route: 048
     Dates: start: 202209
  2. TACROLIMUS [Suspect]
     Active Substance: TACROLIMUS
     Indication: Renal transplant
     Dosage: 2MG TWICE A DAY ORAL
     Route: 048
     Dates: start: 202209
  3. TACROLIMUS [Concomitant]
     Active Substance: TACROLIMUS
  4. EVEROLIMUS [Concomitant]

REACTIONS (1)
  - Squamous cell carcinoma [None]
